FAERS Safety Report 10920650 (Version 1)
Quarter: 2015Q1

REPORT INFORMATION
  Report Type: Spontaneous
  Country: BR (occurrence: BR)
  Receive Date: 20150317
  Receipt Date: 20150317
  Transmission Date: 20150721
  Serious: Yes (Other)
  Sender: FDA-Public Use
  Company Number: BR-AMGEN-BRASP2015014487

PATIENT
  Age: 63 Year
  Sex: Female
  Weight: 68 kg

DRUGS (8)
  1. ALENIA                             /01538101/ [Concomitant]
     Active Substance: BUDESONIDE\FORMOTEROL FUMARATE
     Dosage: 1 TABLET (12 PLUS 400MG), DAILY
  2. TYLEX [Concomitant]
     Active Substance: ACETAMINOPHEN\CODEINE PHOSPHATE
     Indication: PAIN
     Dosage: ONE TABLET (30MG), PER DAY, AS NEEDED
  3. LOSARTAN [Concomitant]
     Active Substance: LOSARTAN
     Indication: HYPERTENSION
     Dosage: UNK
  4. ALCYTAM [Concomitant]
     Dosage: ONE TABLET (30 MG), DAILY
  5. OLCADIL [Concomitant]
     Active Substance: CLOXAZOLAM
     Dosage: ONE TABLET (2 MG), DAILY
  6. ENBREL [Suspect]
     Active Substance: ETANERCEPT
     Indication: RHEUMATOID ARTHRITIS
     Dosage: 50 MG, ONCE WEEKLY
     Route: 065
     Dates: start: 201309, end: 201411
  7. ARCOXIA [Concomitant]
     Active Substance: ETORICOXIB
     Indication: BLOOD PRESSURE ABNORMAL
     Dosage: ONE TABLET (90 MG), DAILY
  8. ENBREL [Suspect]
     Active Substance: ETANERCEPT
     Dosage: 50 MG, QWK
     Route: 065
     Dates: start: 201502

REACTIONS (10)
  - Pain [Not Recovered/Not Resolved]
  - Arthralgia [Not Recovered/Not Resolved]
  - Rheumatoid arthritis [Not Recovered/Not Resolved]
  - Joint effusion [Not Recovered/Not Resolved]
  - Expired product administered [Unknown]
  - Injection site discolouration [Recovered/Resolved]
  - Product quality issue [Recovered/Resolved]
  - Injection site erythema [Recovered/Resolved]
  - Skin sensitisation [Recovered/Resolved]
  - Drug ineffective [Unknown]

NARRATIVE: CASE EVENT DATE: 201309
